FAERS Safety Report 7312629-1 (Version None)
Quarter: 2011Q1

REPORT INFORMATION
  Report Type: 
  Country: None (occurrence: None)
  Receive Date: 20110224
  Receipt Date: 20101206
  Transmission Date: 20110831
  Serious: Yes (Hospitalization)
  Sender: FDA-Public Use
  Company Number: US-BAYER-201039508NA

PATIENT
  Age: 79 Year
  Sex: Female
  Weight: 82.727 kg

DRUGS (2)
  1. AVELOX [Suspect]
     Indication: LUNG INFECTION
     Dosage: 400 MG, QD
     Route: 048
     Dates: start: 20100601, end: 20100615
  2. COUMADIN [Interacting]
     Indication: PULMONARY EMBOLISM
     Route: 048
     Dates: start: 20100301, end: 20100712

REACTIONS (3)
  - HAEMATURIA [None]
  - BLOOD URINE PRESENT [None]
  - COAGULOPATHY [None]
